FAERS Safety Report 8602241-6 (Version None)
Quarter: 2012Q3

REPORT INFORMATION
  Report Type: 
  Country: None (occurrence: None)
  Receive Date: 20120817
  Receipt Date: 20120803
  Transmission Date: 20120928
  Serious: Yes (Other)
  Sender: FDA-Public Use
  Company Number: HR-MYLANLABS-2012S1016287

PATIENT
  Age: 70 Year
  Sex: Male

DRUGS (4)
  1. CLOXACILLIN SODIUM [Interacting]
     Indication: THROMBOPHLEBITIS SUPERFICIAL
     Route: 042
     Dates: start: 20101001
  2. NEBIVOLOL [Concomitant]
     Route: 065
     Dates: start: 20060101
  3. WARFARIN SODIUM [Suspect]
     Indication: ATRIAL FIBRILLATION
     Dosage: 3MG AND 4.5MG ON ALTERNATE DAYS
     Route: 065
     Dates: start: 20060101
  4. CLOXACILLIN SODIUM [Interacting]
     Route: 048
     Dates: start: 20101001

REACTIONS (2)
  - DRUG INTERACTION [None]
  - COAGULATION TIME PROLONGED [None]
